FAERS Safety Report 9057710 (Version 1)
Quarter: 2013Q1

REPORT INFORMATION
  Report Type: Spontaneous
  Country: US (occurrence: None)
  Receive Date: 20130204
  Receipt Date: 20130204
  Transmission Date: 20140127
  Serious: Yes (Hospitalization)
  Sender: FDA-Public Use
  Company Number: None

PATIENT
  Age: 66 Year
  Sex: Male
  Weight: 101.4 kg

DRUGS (2)
  1. DOXEPIN [Suspect]
     Route: 048
     Dates: start: 20120223
  2. VENLAFAXINE [Suspect]
     Route: 048
     Dates: start: 20120110

REACTIONS (2)
  - Drug interaction [None]
  - Myoclonus [None]
